FAERS Safety Report 22037254 (Version 2)
Quarter: 2023Q1

REPORT INFORMATION
  Report Type: Report from Study
  Country: BR (occurrence: BR)
  Receive Date: 20230226
  Receipt Date: 20230317
  Transmission Date: 20230418
  Serious: Yes (Death, Life-Threatening, Hospitalization, Other)
  Sender: FDA-Public Use
  Company Number: BR-002147023-NVSC2023BR040474

PATIENT
  Sex: Female

DRUGS (2)
  1. KISQALI [Suspect]
     Active Substance: RIBOCICLIB
     Indication: Product used for unknown indication
     Dosage: UNK
     Route: 065
  2. KISQALI [Suspect]
     Active Substance: RIBOCICLIB
     Dosage: UNK
     Route: 065

REACTIONS (10)
  - Death [Fatal]
  - Headache [Unknown]
  - Weight decreased [Unknown]
  - Asthenia [Unknown]
  - Visual impairment [Unknown]
  - Haemorrhage [Unknown]
  - Malaise [Unknown]
  - Pain in extremity [Unknown]
  - Visual impairment [Recovered/Resolved]
  - Headache [Recovered/Resolved]
